FAERS Safety Report 6830585-7 (Version None)
Quarter: 2010Q3

REPORT INFORMATION
  Report Type: 
  Country: None (occurrence: None)
  Receive Date: 20100712
  Receipt Date: 20100629
  Transmission Date: 20110219
  Serious: Yes (Other)
  Sender: FDA-Public Use
  Company Number: US-ELI_LILLY_AND_COMPANY-US201007000267

PATIENT
  Sex: Female

DRUGS (1)
  1. EFFIENT [Suspect]
     Indication: STENT PLACEMENT
     Dosage: UNK, UNKNOWN
     Route: 065
     Dates: start: 20100501

REACTIONS (1)
  - MYOCARDIAL INFARCTION [None]
